FAERS Safety Report 19651866 (Version 1)
Quarter: 2021Q3

REPORT INFORMATION
  Report Type: Report from Study
  Country: FR (occurrence: FR)
  Receive Date: 20210803
  Receipt Date: 20210803
  Transmission Date: 20211014
  Serious: Yes (Death)
  Sender: FDA-Public Use
  Company Number: FR-PFIZER INC-202100970124

PATIENT

DRUGS (4)
  1. FLUOROURACIL. [Suspect]
     Active Substance: FLUOROURACIL
     Indication: SQUAMOUS CELL CARCINOMA
     Dosage: 750 MG/M2, DAILY FROM DAY 1 TO DAY 5 AS 120 H OF INTRAVENOUS INFUSION, REPEATED EVERY 3 WEEKS
     Route: 042
  2. CISPLATIN. [Suspect]
     Active Substance: CISPLATIN
     Indication: SQUAMOUS CELL CARCINOMA
     Dosage: 75 MG/M2, CYCLIC  (ON DAY 1, REPEATED EVERY 3 WEEKS)
  3. DOCETAXEL. [Suspect]
     Active Substance: DOCETAXEL
     Indication: SQUAMOUS CELL CARCINOMA
     Dosage: 75 MG/M2, CYCLIC  (ON DAY 1, REPEATED EVERY 3 WEEKS)
  4. FILGRASTIM [Concomitant]
     Active Substance: FILGRASTIM
     Indication: PROPHYLAXIS
     Dosage: 30 MIU, DAILY (FROM DAY 3 TO DAY 11)

REACTIONS (1)
  - Infection [Fatal]
